FAERS Safety Report 7397813-3 (Version None)
Quarter: 2011Q2

REPORT INFORMATION
  Report Type: 
  Country: None (occurrence: None)
  Receive Date: 20110406
  Receipt Date: 20110330
  Transmission Date: 20111010
  Serious: Yes (Hospitalization)
  Sender: FDA-Public Use
  Company Number: CA-PFIZER INC-2011070702

PATIENT
  Age: 70 Year
  Sex: Male
  Weight: 99.773 kg

DRUGS (5)
  1. LYRICA [Suspect]
     Indication: NERVOUS SYSTEM DISORDER
     Dosage: 75 MG, 2X/DAY
     Dates: start: 20090101
  2. HUMULIN 50/50 [Concomitant]
     Indication: DIABETES MELLITUS
     Dosage: 50 UNITS DAILLY
  3. VALSARTAN [Concomitant]
     Dosage: UNK
  4. HUMALOG [Concomitant]
     Indication: DIABETES MELLITUS
     Dosage: 15 UNITS, 3X/DAY
  5. METOPROLOL [Concomitant]
     Dosage: 100 MG, UNK

REACTIONS (2)
  - RASH PRURITIC [None]
  - INFLUENZA [None]
